FAERS Safety Report 5425174-5 (Version None)
Quarter: 2007Q3

REPORT INFORMATION
  Report Type: 
  Country: None (occurrence: None)
  Receive Date: 20070824
  Receipt Date: 20070816
  Transmission Date: 20080115
  Serious: Yes (Hospitalization)
  Sender: FDA-Public Use
  Company Number: CH-ASTRAZENECA-2007PK01754

PATIENT
  Age: 88 Year
  Sex: Female

DRUGS (6)
  1. TENORMIN [Interacting]
     Route: 048
     Dates: end: 20070721
  2. ISOPTIN [Interacting]
     Route: 048
     Dates: end: 20070721
  3. COZAAR [Suspect]
     Route: 048
     Dates: end: 20070721
  4. LASIX [Suspect]
     Route: 048
  5. ASPIRIN [Concomitant]
     Route: 048
  6. ATORVASTATIN CALCIUM [Concomitant]
     Route: 048

REACTIONS (4)
  - BRADYCARDIA [None]
  - DRUG INTERACTION [None]
  - HYPOTENSION [None]
  - SYNCOPE [None]
